FAERS Safety Report 13536125 (Version 3)
Quarter: 2017Q3

REPORT INFORMATION
  Report Type: Spontaneous
  Country: US (occurrence: US)
  Receive Date: 20170511
  Receipt Date: 20170713
  Transmission Date: 20171127
  Serious: No
  Sender: FDA-Public Use
  Company Number: US-PFIZER INC-2017203335

PATIENT
  Age: 68 Year
  Sex: Female

DRUGS (6)
  1. CIPROFLOXACIN. [Concomitant]
     Active Substance: CIPROFLOXACIN
     Dosage: 250 MG, 2X/DAY (Q12 H X ^3 DAYS^ ONLY)
     Dates: start: 20170421, end: 20170424
  2. NEURONTIN [Suspect]
     Active Substance: GABAPENTIN
     Dosage: 300 MG, 2X/DAY (Q12 H)
     Route: 048
     Dates: start: 20170421, end: 20170504
  3. OXYCODONE [Concomitant]
     Active Substance: OXYCODONE
     Indication: PAIN
     Dosage: 5 MG IMMEDIATE RELEASE 1-2 TABS Q4-6 H PRN
     Dates: start: 20170421, end: 20170422
  4. ENOXAPARIN [Concomitant]
     Active Substance: ENOXAPARIN
     Dosage: 40 MG, UNK
     Dates: start: 20170421, end: 20170528
  5. NEURONTIN [Suspect]
     Active Substance: GABAPENTIN
     Indication: HIP SURGERY
     Dosage: 300 MG, 2X/DAY
     Route: 048
     Dates: start: 20170419
  6. TYLENOL [Concomitant]
     Active Substance: ACETAMINOPHEN
     Indication: PAIN
     Dosage: 1000 MG, 4X/DAY (Q6 H PRN)
     Dates: start: 20170422, end: 201705

REACTIONS (2)
  - Product use in unapproved indication [Recovered/Resolved]
  - Rash pruritic [Recovered/Resolved]

NARRATIVE: CASE EVENT DATE: 20170419
